FAERS Safety Report 6598847-9 (Version None)
Quarter: 2010Q1

REPORT INFORMATION
  Report Type: 
  Country: None (occurrence: None)
  Receive Date: 20100217
  Receipt Date: 20100129
  Transmission Date: 20100710
  Serious: Yes (Hospitalization)
  Sender: FDA-Public Use
  Company Number: 1000011693

PATIENT
  Age: 87 Year
  Sex: Female

DRUGS (14)
  1. MEMANTINE HCL [Suspect]
     Dosage: 10 MG (10 MG, 1 IN 1 D), ORAL
     Route: 048
     Dates: start: 20090511, end: 20091117
  2. CARDENSIEL (TABLETS) [Suspect]
     Dosage: 1.25 MG (1.25 MG, 1 IN 1 D), ORAL
     Route: 048
     Dates: start: 20091109
  3. COTAREG [Suspect]
     Dosage: 1 DOSAGE FORMS (1 DOSAGE FORMS, 1 IN 1 D), ORAL
     Route: 048
     Dates: start: 20091109, end: 20091117
  4. ALDACTONE [Suspect]
     Dosage: 25 MG, (25 MG, 1IN 1D), ORAL
     Route: 048
     Dates: start: 20091109, end: 20091117
  5. FUROSEMIDE [Suspect]
     Dosage: 2 DOSAGE FORMS, (2 DOSAGE FORMS, 1 IN 1 D), ORAL
     Route: 048
     Dates: start: 20091109, end: 20091117
  6. TRIMEBUTINE [Suspect]
     Dosage: 6 DOSAGE FORMS (6 DOSAGE FORMS, 1 IN 1 D), ORAL
     Route: 048
     Dates: start: 20091109, end: 20091117
  7. BIPERIDYS [Suspect]
     Dosage: 3 DOSAGE FORMS (3 DOSAGE FORMS, 1 IN 1 D), ORAL
     Route: 048
     Dates: start: 20091109, end: 20091117
  8. FORLAX [Suspect]
     Dosage: 2 DOSAGE FORMS (2 DOSAGE FORMS, 1 IN 1 D), ORAL
     Route: 048
     Dates: start: 20091109, end: 20091117
  9. DIFFU K [Suspect]
     Dosage: 6 DOSAGE FORMS (6 DOSAGE FORMS, 1 IN 1 D), ORAL
     Route: 048
     Dates: start: 20091109, end: 20091117
  10. TOPALGIC (TABLETS) [Concomitant]
  11. PREVISCAN [Concomitant]
  12. INEXIUM (TABLETS) [Concomitant]
  13. DAFALGAN (CAPSULES) [Concomitant]
  14. ZOLPIDEM [Concomitant]

REACTIONS (8)
  - ATRIAL FIBRILLATION [None]
  - BLOOD CREATININE INCREASED [None]
  - BRADYCARDIA [None]
  - CYANOSIS [None]
  - DEHYDRATION [None]
  - GENERAL PHYSICAL HEALTH DETERIORATION [None]
  - MENTAL DISORDER [None]
  - RENAL FAILURE ACUTE [None]
